FAERS Safety Report 18845281 (Version 1)
Quarter: 2021Q1

REPORT INFORMATION
  Report Type: Spontaneous
  Country: US (occurrence: US)
  Receive Date: 20210204
  Receipt Date: 20210204
  Transmission Date: 20210419
  Serious: Yes (Hospitalization)
  Sender: FDA-Public Use
  Company Number: None

PATIENT
  Age: 70 Year
  Sex: Male
  Weight: 41.5 kg

DRUGS (1)
  1. CISPLATIN. [Suspect]
     Active Substance: CISPLATIN
     Dates: end: 20210113

REACTIONS (4)
  - Dehydration [None]
  - Blood creatinine increased [None]
  - Asthenia [None]
  - Blood urea increased [None]

NARRATIVE: CASE EVENT DATE: 20210126
